FAERS Safety Report 26142620 (Version 1)
Quarter: 2025Q4

REPORT INFORMATION
  Report Type: Spontaneous
  Country: US (occurrence: US)
  Receive Date: 20251211
  Receipt Date: 20251211
  Transmission Date: 20260117
  Serious: Yes (Other)
  Sender: BEIGENE
  Company Number: US-BEONEMEDICINES-BGN-2025-021753

PATIENT
  Age: 73 Year
  Sex: Female

DRUGS (2)
  1. BRUKINSA [Suspect]
     Active Substance: ZANUBRUTINIB
     Indication: Plasmacytoma
     Dosage: 320 MILLIGRAM, DAILY
  2. BRUKINSA [Suspect]
     Active Substance: ZANUBRUTINIB
     Dosage: 160 MILLIGRAM, DAILY

REACTIONS (5)
  - Hepatitis B reactivation [Unknown]
  - Rash [Unknown]
  - Oedema peripheral [Unknown]
  - Asthenia [Unknown]
  - Off label use [Unknown]
